FAERS Safety Report 8617433-X (Version None)
Quarter: 2012Q3

REPORT INFORMATION
  Report Type: 
  Country: None (occurrence: None)
  Receive Date: 20120824
  Receipt Date: 20120816
  Transmission Date: 20120928
  Serious: Yes (Hospitalization, Disabling, Other)
  Sender: FDA-Public Use
  Company Number: US-009507513-1206USA04857

PATIENT

DRUGS (3)
  1. FOSAMAX [Suspect]
     Indication: OSTEOPOROSIS PROPHYLAXIS
     Dosage: 70 MG, QW
     Route: 048
     Dates: start: 20030701, end: 20050701
  2. FOSAMAX [Suspect]
     Dosage: 70 MG, QW
     Route: 048
     Dates: start: 20090826, end: 20100508
  3. FOSAMAX PLUS D [Suspect]
     Indication: OSTEOPOROSIS PROPHYLAXIS
     Dosage: 70 MG, QW
     Route: 048
     Dates: start: 20050706, end: 20080601

REACTIONS (17)
  - LOW TURNOVER OSTEOPATHY [None]
  - ABDOMINAL DISTENSION [None]
  - STRESS FRACTURE [None]
  - HAEMORRHOIDS [None]
  - RECTOCELE [None]
  - HEADACHE [None]
  - OPEN REDUCTION OF FRACTURE [None]
  - OSTEOPOROSIS [None]
  - HYPERCHOLESTEROLAEMIA [None]
  - DRUG HYPERSENSITIVITY [None]
  - CYSTOCELE [None]
  - FEMUR FRACTURE [None]
  - HYPERTENSION [None]
  - TRANSFUSION [None]
  - TOOTH DISORDER [None]
  - ANAEMIA POSTOPERATIVE [None]
  - ATROPHIC VULVOVAGINITIS [None]
